FAERS Safety Report 8908525 (Version 1)
Quarter: 2012Q4

REPORT INFORMATION
  Report Type: 
  Country: US (occurrence: US)
  Receive Date: 20121114
  Receipt Date: 20121114
  Transmission Date: 20130627
  Serious: Yes (Hospitalization, Disabling, Other)
  Sender: FDA-Public Use
  Company Number: US-ELI_LILLY_AND_COMPANY-US201211001458

PATIENT
  Age: 58 Year
  Sex: Female

DRUGS (4)
  1. CYMBALTA [Suspect]
     Indication: DEPRESSION
     Dosage: 30 mg, UNK
     Dates: start: 2009, end: 2010
  2. CYMBALTA [Suspect]
     Dosage: 30 mg, qd
     Dates: start: 201209, end: 201210
  3. CYMBALTA [Suspect]
     Dosage: 30 mg, bid
     Dates: start: 201210
  4. HYDROMORPHONE [Concomitant]

REACTIONS (13)
  - Road traffic accident [Unknown]
  - Hepatic steatosis [Unknown]
  - Hepatic cirrhosis [Unknown]
  - Gastric bypass [Unknown]
  - Pancreatic carcinoma [Unknown]
  - Intraductal papillary mucinous neoplasm [Unknown]
  - Back pain [Unknown]
  - Gait disturbance [Unknown]
  - Nodule [Unknown]
  - Malabsorption [Unknown]
  - Pulmonary congestion [Unknown]
  - Insomnia [Unknown]
  - Drug ineffective [Unknown]
